FAERS Safety Report 6603094-8 (Version None)
Quarter: 2010Q1

REPORT INFORMATION
  Report Type: 
  Country: None (occurrence: None)
  Receive Date: 20100226
  Receipt Date: 20100217
  Transmission Date: 20100710
  Serious: Yes (Hospitalization, Other)
  Sender: FDA-Public Use
  Company Number: US-PFIZER INC-2010021912

PATIENT
  Sex: Female
  Weight: 62.585 kg

DRUGS (11)
  1. NORVASC [Suspect]
     Dosage: 1 DF, DAILY
     Dates: start: 19890101
  2. AMLODIPINE BESYLATE [Suspect]
  3. TOPROL-XL [Concomitant]
  4. DIGOXIN [Concomitant]
  5. LOVAZA [Concomitant]
  6. CALCIUM WITH VITAMIN D [Concomitant]
  7. COENZYME Q10 [Concomitant]
  8. NIACIN [Concomitant]
  9. VITAMIN B-12 [Concomitant]
  10. VITAMIN B6 [Concomitant]
  11. FOLIC ACID [Concomitant]

REACTIONS (3)
  - CORONARY ARTERY BYPASS [None]
  - COUGH [None]
  - HERPES ZOSTER [None]
